FAERS Safety Report 18239090 (Version 4)
Quarter: 2020Q4

REPORT INFORMATION
  Report Type: Report from Study
  Country: US (occurrence: US)
  Receive Date: 20200907
  Receipt Date: 20201124
  Transmission Date: 20210113
  Serious: Yes (Hospitalization)
  Sender: FDA-Public Use
  Company Number: US-JNJFOC-A-US2019-191659

PATIENT
  Age: 63 Year
  Sex: Female
  Weight: 83.08 kg

DRUGS (5)
  1. OPSUMIT [Suspect]
     Active Substance: MACITENTAN
     Route: 048
  2. ADEMPAS [Concomitant]
     Active Substance: RIOCIGUAT
     Dosage: 0.5 MG, TID
  3. VELETRI [Suspect]
     Active Substance: EPOPROSTENOL
     Dosage: 39.5 NG/KG, PER MIN
     Route: 042
  4. VELETRI [Suspect]
     Active Substance: EPOPROSTENOL
     Indication: PULMONARY ARTERIAL HYPERTENSION
     Dosage: 39.5 NG/KG, PER MIN
     Route: 042
  5. OPSUMIT [Suspect]
     Active Substance: MACITENTAN
     Indication: PULMONARY ARTERIAL HYPERTENSION
     Dosage: 10 MG, QD
     Route: 048
     Dates: start: 201905

REACTIONS (14)
  - Fatigue [Unknown]
  - Flushing [Unknown]
  - Dyspnoea exertional [Unknown]
  - Faeces discoloured [Unknown]
  - Memory impairment [Unknown]
  - Productive cough [Unknown]
  - Somnolence [Unknown]
  - Dyspnoea [Unknown]
  - Diarrhoea [Unknown]
  - Condition aggravated [Unknown]
  - Pain in extremity [Unknown]
  - Headache [Unknown]
  - Epistaxis [Unknown]
  - Amnesia [Unknown]

NARRATIVE: CASE EVENT DATE: 2016
